FAERS Safety Report 6981206-4 (Version None)
Quarter: 2010Q3

REPORT INFORMATION
  Report Type: 
  Country: None (occurrence: None)
  Receive Date: 20100914
  Receipt Date: 20100903
  Transmission Date: 20110219
  Serious: Yes (Other)
  Sender: FDA-Public Use
  Company Number: US-PFIZER INC-2010100615

PATIENT
  Sex: Female

DRUGS (8)
  1. SERTRALINE HYDROCHLORIDE [Suspect]
     Dosage: 12.5 MG, UNK
     Route: 048
     Dates: start: 20100724, end: 20100726
  2. PROZAC [Suspect]
     Dosage: UNK
  3. WELLBUTRIN [Suspect]
     Dosage: UNK
     Route: 048
  4. LEXAPRO [Suspect]
     Dosage: UNK
     Route: 048
  5. PAXIL [Suspect]
     Dosage: UNK
     Route: 048
  6. CYMBALTA [Suspect]
     Dosage: UNK
     Route: 048
  7. ELAVIL [Suspect]
     Dosage: UNK
  8. REMERON [Suspect]
     Dosage: UNK
     Route: 048

REACTIONS (4)
  - ABNORMAL DREAMS [None]
  - ACTIVITIES OF DAILY LIVING IMPAIRED [None]
  - ANXIETY [None]
  - SEDATION [None]
